FAERS Safety Report 8302431-6 (Version None)
Quarter: 2012Q2

REPORT INFORMATION
  Report Type: 
  Country: None (occurrence: None)
  Receive Date: 20120420
  Receipt Date: 20120402
  Transmission Date: 20120825
  Serious: Yes (Other)
  Sender: FDA-Public Use
  Company Number: CHPA2012US007344

PATIENT
  Age: 63 Year
  Sex: Female

DRUGS (3)
  1. CARAFATE [Concomitant]
     Dosage: UNK, UNK
     Dates: start: 20090101
  2. MAALOX ADV MAXIMUM STRENGTH ANTACID/ANTIGAS [Suspect]
     Dosage: A BIG LUG, UNK
     Route: 048
  3. DRUG THERAPY NOS [Concomitant]
     Dosage: UNK, UNK

REACTIONS (4)
  - MIGRAINE [None]
  - BARRETT'S OESOPHAGUS [None]
  - WRONG TECHNIQUE IN DRUG USAGE PROCESS [None]
  - MATERNAL EXPOSURE DURING PREGNANCY [None]
